FAERS Safety Report 13239608 (Version 3)
Quarter: 2017Q3

REPORT INFORMATION
  Report Type: Report from Study
  Country: BR (occurrence: BR)
  Receive Date: 20170216
  Receipt Date: 20170928
  Transmission Date: 20171127
  Serious: Yes (Death)
  Sender: FDA-Public Use
  Company Number: BR-B.I. PHARMACEUTICALS,INC./RIDGEFIELD-2017-BI-008430

PATIENT

DRUGS (1)
  1. OFEV [Suspect]
     Active Substance: NINTEDANIB
     Indication: IDIOPATHIC PULMONARY FIBROSIS
     Route: 065

REACTIONS (8)
  - Respiratory failure [Fatal]
  - Diarrhoea [Fatal]
  - Idiopathic pulmonary fibrosis [Fatal]
  - Nausea [Fatal]
  - Abdominal pain [Fatal]
  - Infection [Fatal]
  - Gastric disorder [Fatal]
  - Acute respiratory failure [Fatal]
